FAERS Safety Report 15814680 (Version 2)
Quarter: 2019Q1

REPORT INFORMATION
  Report Type: Report from Study
  Country: US (occurrence: US)
  Receive Date: 20190111
  Receipt Date: 20190121
  Transmission Date: 20190417
  Serious: Yes (Death, Hospitalization)
  Sender: FDA-Public Use
  Company Number: US-ACTELION-A-US2019-184523

PATIENT
  Age: 57 Year
  Sex: Female
  Weight: 87.98 kg

DRUGS (1)
  1. VELETRI [Suspect]
     Active Substance: EPOPROSTENOL
     Indication: PULMONARY HYPERTENSION
     Route: 042

REACTIONS (6)
  - Death [Fatal]
  - Mental status changes [Unknown]
  - Seizure [Unknown]
  - Hypoaesthesia [Unknown]
  - Condition aggravated [Unknown]
  - Cerebrovascular accident [Unknown]

NARRATIVE: CASE EVENT DATE: 20181230
